FAERS Safety Report 21524953 (Version 1)
Quarter: 2022Q4

REPORT INFORMATION
  Report Type: Spontaneous
  Country: US (occurrence: US)
  Receive Date: 20221030
  Receipt Date: 20221030
  Transmission Date: 20230113
  Serious: Yes (Hospitalization)
  Sender: FDA-Public Use
  Company Number: None

PATIENT
  Age: 44 Year
  Sex: Male
  Weight: 84 kg

DRUGS (6)
  1. LIDOCAINE HYDROCHLORIDE [Suspect]
     Active Substance: LIDOCAINE HYDROCHLORIDE
     Indication: Aortic valve replacement
  2. MIDAZOLAM [Concomitant]
     Active Substance: MIDAZOLAM
     Indication: Aortic valve replacement
  3. PROPOFOL [Concomitant]
     Active Substance: PROPOFOL
     Indication: Aortic valve replacement
  4. VECURONIUM [Concomitant]
     Active Substance: VECURONIUM BROMIDE
     Indication: Aortic valve replacement
  5. ISOFLURANE [Concomitant]
     Active Substance: ISOFLURANE
     Indication: Aortic valve replacement
  6. FENTANYL [Concomitant]
     Active Substance: FENTANYL
     Indication: Aortic valve replacement

REACTIONS (1)
  - Urticaria [Recovered/Resolved]
